FAERS Safety Report 5193757-6 (Version None)
Quarter: 2006Q4

REPORT INFORMATION
  Report Type: 
  Country: None (occurrence: None)
  Receive Date: 20061228
  Receipt Date: 20061128
  Transmission Date: 20070319
  Serious: Yes (Other)
  Sender: FDA-Public Use
  Company Number: FR-GLAXOSMITHKLINE-B0448869A

PATIENT
  Age: 53 Year
  Sex: Female
  Weight: 52 kg

DRUGS (2)
  1. VALACYCLOVIR [Suspect]
     Indication: HERPES VIRUS INFECTION
     Dosage: 500MG PER DAY
     Route: 048
     Dates: start: 20060701
  2. ANTI INFLAMMATORY DRUG [Concomitant]
     Route: 065

REACTIONS (6)
  - DRUG INEFFECTIVE [None]
  - ENTEROCOLITIS HAEMORRHAGIC [None]
  - EOSINOPHILIA [None]
  - HAEMATOCHEZIA [None]
  - HERPES VIRUS INFECTION [None]
  - PROCTALGIA [None]
